FAERS Safety Report 5381347-1 (Version None)
Quarter: 2007Q2

REPORT INFORMATION
  Report Type: 
  Country: None (occurrence: None)
  Receive Date: 20070629
  Receipt Date: 20070418
  Transmission Date: 20071010
  Serious: Yes (Hospitalization)
  Sender: FDA-Public Use
  Company Number: 2006141207

PATIENT
  Age: 64 Year
  Sex: Female
  Weight: 182 kg

DRUGS (9)
  1. SERTRALINE [Suspect]
     Indication: DEPRESSION
     Dosage: 50 MG (1 IN 1 D), ORAL
     Route: 048
     Dates: start: 20061001, end: 20061001
  2. LUNESTA [Suspect]
     Indication: INSOMNIA
     Dosage: 2 MG (1 IN 1 D), ORAL
     Route: 048
     Dates: start: 20061001, end: 20061001
  3. ZESTRIL [Concomitant]
  4. CARDIZEM [Concomitant]
  5. METOPROLOL TARTRATE [Concomitant]
  6. ACETYLSALICYLIC ACID SRT [Concomitant]
  7. PRAVACHOL [Concomitant]
  8. NORVASC [Concomitant]
  9. DITROPAN [Concomitant]

REACTIONS (1)
  - GLOBAL AMNESIA [None]
